FAERS Safety Report 17241742 (Version 1)
Quarter: 2019Q4

REPORT INFORMATION
  Report Type: Spontaneous
  Country: US (occurrence: US)
  Receive Date: 20191211
  Receipt Date: 20191211
  Transmission Date: 20200122
  Serious: No
  Sender: FDA-Public Use
  Company Number: None

PATIENT
  Age: 30 Year
  Sex: Male

DRUGS (1)
  1. INFLIXIMAB-ABDA (INFLIXIMAB-ABDA-100MG/VIL INJ, LYPHL.) [Suspect]
     Active Substance: INFLIXIMAB-ABDA
     Indication: CROHN^S DISEASE
     Dosage: ? 100 MG/VIL;?          OTHER
     Route: 042
     Dates: start: 20191017, end: 20191105

REACTIONS (5)
  - Urticaria [None]
  - Dyspnoea [None]
  - Pruritus [None]
  - Pharyngeal swelling [None]
  - Infusion related reaction [None]

NARRATIVE: CASE EVENT DATE: 20191105
